FAERS Safety Report 8349010-2 (Version None)
Quarter: 2012Q2

REPORT INFORMATION
  Report Type: 
  Country: None (occurrence: None)
  Receive Date: 20120510
  Receipt Date: 20120507
  Transmission Date: 20120825
  Serious: Yes (Other)
  Sender: FDA-Public Use
  Company Number: US-BAYER-2012-026737

PATIENT
  Age: 50 Year
  Sex: Female
  Weight: 55.782 kg

DRUGS (1)
  1. GADAVIST [Suspect]
     Indication: NUCLEAR MAGNETIC RESONANCE IMAGING BRAIN
     Dosage: 6 ML, ONCE

REACTIONS (3)
  - PRURITUS [None]
  - URTICARIA [None]
  - WHEEZING [None]
